FAERS Safety Report 8089442-3 (Version None)
Quarter: 2012Q1

REPORT INFORMATION
  Report Type: 
  Country: None (occurrence: None)
  Receive Date: 20120128
  Receipt Date: 20110627
  Transmission Date: 20120608
  Serious: No
  Sender: FDA-Public Use
  Company Number: US-ABBOTT-11P-163-0834799-00

PATIENT
  Sex: Female
  Weight: 54.48 kg

DRUGS (3)
  1. ZYRTEC [Concomitant]
     Indication: ALLERGIC SINUSITIS
     Dosage: AS NEEDED
     Route: 048
  2. HUMIRA [Suspect]
     Indication: CROHN'S DISEASE
     Route: 058
     Dates: start: 20110627, end: 20110627
  3. BYSTOLIC [Concomitant]
     Indication: HYPERTENSION
     Route: 048

REACTIONS (1)
  - INJECTION SITE PAIN [None]
